FAERS Safety Report 15814904 (Version 1)
Quarter: 2019Q1

REPORT INFORMATION
  Report Type: Spontaneous
  Country: FR (occurrence: FR)
  Receive Date: 20190111
  Receipt Date: 20190111
  Transmission Date: 20190417
  Serious: Yes (Hospitalization)
  Sender: FDA-Public Use
  Company Number: FR-ACCORD-101441

PATIENT
  Age: 83 Year
  Sex: Female

DRUGS (20)
  1. CANDESARTAN. [Concomitant]
     Active Substance: CANDESARTAN
  2. AMOXICILLIN. [Suspect]
     Active Substance: AMOXICILLIN
     Indication: URINARY TRACT INFECTION
     Route: 048
     Dates: start: 20180212, end: 20180220
  3. PREVISCAN [Concomitant]
  4. TRILEPTAL [Concomitant]
     Active Substance: OXCARBAZEPINE
  5. COLCHICINE. [Suspect]
     Active Substance: COLCHICINE
     Indication: GOUT
     Dosage: STRENGTH: 1 MG
     Route: 048
  6. CYANOCOBALAMIN. [Concomitant]
     Active Substance: CYANOCOBALAMIN
  7. SPECIAFOLDINE [Concomitant]
     Active Substance: FOLIC ACID
  8. EPINITRIL [Concomitant]
     Active Substance: NITROGLYCERIN
  9. XANAX [Concomitant]
     Active Substance: ALPRAZOLAM
  10. GAVISCON [Concomitant]
     Active Substance: ALUMINUM HYDROXIDE\MAGNESIUM CARBONATE
  11. MOVICOL [Concomitant]
     Active Substance: POLYETHYLENE GLYCOL 3350\POTASSIUM CHLORIDE\SODIUM BICARBONATE\SODIUM CHLORIDE
  12. PRIMPERAN [Concomitant]
     Active Substance: METOCLOPRAMIDE HYDROCHLORIDE
  13. LAROXYL [Concomitant]
     Active Substance: AMITRIPTYLINE HYDROCHLORIDE
  14. OGASTORO [Concomitant]
     Active Substance: LANSOPRAZOLE
  15. LASILIX [Concomitant]
     Active Substance: FUROSEMIDE
  16. DIFFU K [Concomitant]
     Active Substance: POTASSIUM CHLORIDE
  17. BISOPROLOL [Concomitant]
     Active Substance: BISOPROLOL
  18. KARDEGIC [Concomitant]
     Active Substance: ASPIRIN DL-LYSINE
  19. ALLOPURINOL. [Suspect]
     Active Substance: ALLOPURINOL
     Indication: GOUT
     Route: 048
  20. SPASFON (PHLOROGLUCINOL\TRIMETHYLPHLOROGLUCINOL) [Concomitant]
     Active Substance: PHLOROGLUCINOL\1,3,5-TRIMETHOXYBENZENE

REACTIONS (3)
  - Pruritus [Recovering/Resolving]
  - Prurigo [Recovering/Resolving]
  - Xerosis [Recovering/Resolving]

NARRATIVE: CASE EVENT DATE: 201802
